FAERS Safety Report 9343848 (Version 6)
Quarter: 2014Q2

REPORT INFORMATION
  Report Type: Spontaneous
  Country: US (occurrence: US)
  Receive Date: 20130612
  Receipt Date: 20140428
  Transmission Date: 20141212
  Serious: No
  Sender: FDA-Public Use
  Company Number: US-PFIZER INC-2013173561

PATIENT
  Age: 66 Year
  Sex: Female
  Weight: 62.6 kg

DRUGS (3)
  1. ESTRING [Suspect]
     Indication: VULVOVAGINAL DRYNESS
     Dosage: 2 MG, (SHE WAS USING IT ON AND OFF WITH A GAP OF 3 MONTHS)
     Route: 067
     Dates: start: 20100205, end: 2013
  2. LIPITOR [Concomitant]
     Indication: BLOOD CHOLESTEROL ABNORMAL
     Dosage: UNK
  3. ATENOLOL [Concomitant]
     Indication: BONE DENSITY DECREASED
     Dosage: UNK

REACTIONS (2)
  - Cervix disorder [Unknown]
  - Drug ineffective [Unknown]
